FAERS Safety Report 20940508 (Version 2)
Quarter: 2022Q2

REPORT INFORMATION
  Report Type: Report from Study
  Country: US (occurrence: US)
  Receive Date: 20220609
  Receipt Date: 20220613
  Transmission Date: 20220721
  Serious: Yes (Other)
  Sender: FDA-Public Use
  Company Number: US-JAZZ-2022-US-019604

PATIENT
  Age: 57 Year
  Sex: Male

DRUGS (11)
  1. XYREM [Suspect]
     Active Substance: SODIUM OXYBATE
     Indication: Narcolepsy
     Route: 048
  2. GABAPENTIN [Suspect]
     Active Substance: GABAPENTIN
     Indication: Product used for unknown indication
     Route: 065
  3. AZELASTINE [Concomitant]
     Active Substance: AZELASTINE
     Dosage: 0010
     Dates: start: 20150209
  4. ALLOPURINOL [Concomitant]
     Active Substance: ALLOPURINOL
     Dosage: 0020
     Dates: start: 20150209
  5. COLCHICINE [Concomitant]
     Active Substance: COLCHICINE
     Dosage: 0010
     Dates: start: 20150209
  6. ZYRTEC [Concomitant]
     Active Substance: CETIRIZINE HYDROCHLORIDE
     Dosage: 0000
     Dates: start: 20151203
  7. CHLOR-TRIMETON ALLERGY SINUS [Concomitant]
     Dosage: 0000
     Dates: start: 20151203
  8. OMEPRAZOLE [Concomitant]
     Active Substance: OMEPRAZOLE
     Dosage: 0000
     Dates: start: 20151204
  9. DEXMETHYLPHENIDATE [Concomitant]
     Active Substance: DEXMETHYLPHENIDATE
     Dosage: 0000
     Dates: start: 20170710
  10. LYRICA [Concomitant]
     Active Substance: PREGABALIN
     Dosage: 0000
     Dates: start: 20220608
  11. HYDROCHLOROTHIAZIDE\LOSARTAN [Concomitant]
     Active Substance: HYDROCHLOROTHIAZIDE\LOSARTAN
     Indication: Product used for unknown indication

REACTIONS (4)
  - Spinal fusion surgery [Unknown]
  - Drug interaction [Unknown]
  - Unevaluable event [Unknown]
  - Blood pressure increased [Unknown]

NARRATIVE: CASE EVENT DATE: 20220412
